FAERS Safety Report 14270391 (Version 1)
Quarter: 2017Q4

REPORT INFORMATION
  Report Type: Spontaneous
  Country: JP (occurrence: JP)
  Receive Date: 20171211
  Receipt Date: 20171211
  Transmission Date: 20180321
  Serious: Yes (Hospitalization, Other)
  Sender: FDA-Public Use
  Company Number: JP-OTSUKA-001136

PATIENT

DRUGS (7)
  1. ABILIFY [Suspect]
     Active Substance: ARIPIPRAZOLE
     Dosage: UNK UNKNOWN, UNKNOWN
     Route: 048
     Dates: start: 20070426, end: 200705
  2. SULPIRIDE [Suspect]
     Active Substance: SULPIRIDE
     Indication: DEPRESSION
     Dosage: TABLET.
     Route: 048
     Dates: start: 20080514, end: 20080516
  3. YOKU-KAN-SAN [Concomitant]
     Active Substance: HERBALS
     Indication: IRRITABILITY
     Dosage: 2.5 G, BID
     Route: 048
     Dates: start: 20080514, end: 20080516
  4. ABILIFY [Suspect]
     Active Substance: ARIPIPRAZOLE
     Indication: ANXIETY
     Dosage: 3 MG, QD
     Route: 048
     Dates: start: 20080514, end: 20080516
  5. MIRADOL [Suspect]
     Active Substance: SULPIRIDE
     Indication: DEPRESSION
     Dosage: 50 MG, TID
     Route: 048
     Dates: start: 20080514, end: 20080516
  6. YOKUKANSAN [Concomitant]
     Active Substance: HERBALS
     Dosage: DOSAGE FORM -GRANULE
     Dates: start: 20080514, end: 20080516
  7. HOCHU-EKKI-TO [Concomitant]
     Active Substance: UNSPECIFIED INGREDIENT
     Indication: MALAISE
     Dosage: 2.5 G, BID
     Route: 048
     Dates: start: 20080514, end: 20080516

REACTIONS (2)
  - Blood creatine phosphokinase increased [Recovering/Resolving]
  - Dystonia [Recovered/Resolved]

NARRATIVE: CASE EVENT DATE: 20080516
